FAERS Safety Report 7780355-0 (Version None)
Quarter: 2011Q3

REPORT INFORMATION
  Report Type: 
  Country: None (occurrence: None)
  Receive Date: 20110922
  Receipt Date: 20110915
  Transmission Date: 20111222
  Serious: Yes (Death)
  Sender: FDA-Public Use
  Company Number: LEO-2011-00679

PATIENT
  Age: 87 Year
  Sex: Male

DRUGS (5)
  1. INNOHEP [Suspect]
     Indication: DEEP VEIN THROMBOSIS
     Dosage: SUBCUTANEOUS
     Route: 058
     Dates: start: 20110523, end: 20110525
  2. ENALAPRIL MALEATE [Concomitant]
  3. VALIUM [Concomitant]
  4. LANTUS (INUSLIN GLARGINE) [Concomitant]
  5. CALCIPARINE [Suspect]
     Indication: DEEP VEIN THROMBOSIS
     Dates: start: 20110518, end: 20110523

REACTIONS (3)
  - MELAENA [None]
  - HYPOTENSION [None]
  - ANAEMIA [None]
